FAERS Safety Report 8837179 (Version 2)
Quarter: 2012Q4

REPORT INFORMATION
  Report Type: Report from Study
  Country: FR (occurrence: FR)
  Receive Date: 20121011
  Receipt Date: 20121218
  Transmission Date: 20130627
  Serious: Yes (Other)
  Sender: FDA-Public Use
  Company Number: FR-ROCHE-CID000000002176828

PATIENT
  Age: 81 Year
  Sex: Male

DRUGS (5)
  1. RITUXIMAB [Suspect]
     Indication: CHRONIC LYMPHOCYTIC LEUKAEMIA
     Dosage: last dose taken 04/Jan/2011,980 mg
     Route: 042
     Dates: start: 20100817, end: 20110104
  2. CHLORAMBUCIL [Suspect]
     Indication: CHRONIC LYMPHOCYTIC LEUKAEMIA
     Dosage: last dose taken 19/Jan/2011, 42 mg
     Route: 048
     Dates: start: 20100818
  3. COAPROVEL [Concomitant]
     Route: 065
     Dates: start: 200501
  4. MEDIATENSYL [Concomitant]
     Route: 065
     Dates: start: 200501
  5. LANSOPRAZOLE [Concomitant]
     Route: 065
     Dates: start: 200701

REACTIONS (1)
  - Transitional cell carcinoma [Recovered/Resolved]
